FAERS Safety Report 6986445-4 (Version None)
Quarter: 2010Q3

REPORT INFORMATION
  Report Type: 
  Country: None (occurrence: None)
  Receive Date: 20100915
  Receipt Date: 20090701
  Transmission Date: 20110219
  Serious: No
  Sender: FDA-Public Use
  Company Number: US-WYE-H09999509

PATIENT
  Age: 40 Year
  Sex: Male
  Weight: 68.1 kg

DRUGS (1)
  1. PRISTIQ [Suspect]
     Indication: FEELING ABNORMAL
     Route: 048
     Dates: start: 20090617

REACTIONS (5)
  - DECREASED APPETITE [None]
  - DIZZINESS [None]
  - FALL [None]
  - FATIGUE [None]
  - MOUTH INJURY [None]
